FAERS Safety Report 9768296 (Version 1)
Quarter: 2013Q4

REPORT INFORMATION
  Report Type: Spontaneous
  Country: SE (occurrence: SE)
  Receive Date: 20131217
  Receipt Date: 20131217
  Transmission Date: 20140711
  Serious: Yes (Hospitalization)
  Sender: FDA-Public Use
  Company Number: SE-ABBVIE-13P-150-1179758-00

PATIENT
  Age: 55 Year
  Sex: Male

DRUGS (3)
  1. NEXIUM HP [Suspect]
     Indication: HELICOBACTER INFECTION
     Route: 048
     Dates: start: 20131018, end: 20131025
  2. AMOXICILLIN [Suspect]
     Indication: HELICOBACTER INFECTION
     Route: 048
     Dates: start: 20131018, end: 20131025
  3. NEXIUM [Suspect]
     Indication: HELICOBACTER INFECTION
     Route: 048
     Dates: start: 20131018, end: 20131025

REACTIONS (6)
  - Eyelid oedema [Unknown]
  - Swollen tongue [Unknown]
  - Skin lesion [Recovering/Resolving]
  - Skin reaction [Not Recovered/Not Resolved]
  - Urticaria [Unknown]
  - Fatigue [Unknown]
